FAERS Safety Report 7880464-1 (Version None)
Quarter: 2011Q4

REPORT INFORMATION
  Report Type: 
  Country: None (occurrence: None)
  Receive Date: 20111101
  Receipt Date: 20111025
  Transmission Date: 20120403
  Serious: Yes (Other)
  Sender: FDA-Public Use
  Company Number: PHEH2011US07837

PATIENT
  Sex: Female

DRUGS (6)
  1. STALEVO 100 [Suspect]
     Dosage: 100 MG, TID
     Dates: start: 20111017
  2. SELEGILINE [Concomitant]
     Dosage: 5 MG
  3. PROPRANOLOL [Concomitant]
     Dosage: 80 MG, QD
  4. HYDROCHLOROTHIAZIDE [Concomitant]
     Dosage: 12.5 MG, BID
  5. STALEVO 100 [Suspect]
     Dosage: 75 MG, TID
  6. REQUIP [Concomitant]
     Dosage: 8 MG, BID

REACTIONS (2)
  - GENERAL PHYSICAL HEALTH DETERIORATION [None]
  - FREEZING PHENOMENON [None]
